FAERS Safety Report 4569671-3 (Version None)
Quarter: 2005Q1

REPORT INFORMATION
  Report Type: 
  Country: None (occurrence: None)
  Receive Date: 20050201
  Receipt Date: 20050124
  Transmission Date: 20050727
  Serious: Yes (Hospitalization, Other)
  Sender: FDA-Public Use
  Company Number: 2004097842

PATIENT
  Sex: Female
  Weight: 6 kg

DRUGS (3)
  1. NEURONTIN [Suspect]
     Dosage: PLACENTAL
  2. PHENOBARBITAL TAB [Suspect]
     Dosage: PLACENTAL
  3. CLOBAZAM (CLOBAZAM) [Suspect]
     Dosage: PLACENTAL

REACTIONS (6)
  - DRUG EXPOSURE DURING PREGNANCY [None]
  - GROWTH RETARDATION [None]
  - LATE DEVELOPER [None]
  - PREMATURE BABY [None]
  - PYLORIC STENOSIS [None]
  - SMALL FOR DATES BABY [None]
